FAERS Safety Report 20849101 (Version 1)
Quarter: 2022Q2

REPORT INFORMATION
  Report Type: Spontaneous
  Country: HU (occurrence: HU)
  Receive Date: 20220519
  Receipt Date: 20220519
  Transmission Date: 20220721
  Serious: No
  Sender: FDA-Public Use
  Company Number: HU-LUPIN PHARMACEUTICALS INC.-2022-07079

PATIENT
  Age: 70 Year
  Sex: Male

DRUGS (6)
  1. METFORMIN [Suspect]
     Active Substance: METFORMIN HYDROCHLORIDE
     Indication: Squamous cell carcinoma of skin
     Dosage: UNK, DOSAGE: (3 X500MG DAILY)
     Route: 065
     Dates: start: 201705, end: 201906
  2. METFORMIN [Suspect]
     Active Substance: METFORMIN HYDROCHLORIDE
     Dosage: UNK
     Route: 065
     Dates: start: 201907
  3. TRAMETINIB [Suspect]
     Active Substance: TRAMETINIB
     Indication: Squamous cell carcinoma of skin
     Dosage: UNK
     Route: 065
     Dates: start: 201810, end: 201906
  4. AZATHIOPRINE [Concomitant]
     Active Substance: AZATHIOPRINE
     Indication: Myasthenia gravis
     Dosage: 150 MG, QD
     Route: 065
     Dates: start: 2011
  5. CISPLATIN [Concomitant]
     Active Substance: CISPLATIN
     Indication: Squamous cell carcinoma of skin
     Dosage: 100 MILLIGRAM/SQ. METER, ON DAY 1 OF THE CYCLE; RECEIVED SIX CYCLES
     Route: 065
     Dates: start: 201609, end: 201701
  6. FLUOROURACIL [Concomitant]
     Active Substance: FLUOROURACIL
     Indication: Squamous cell carcinoma of skin
     Dosage: 1000 MILLIGRAM/SQ. METER, ON DAY 1-5 OF THE CYCLE; RECEIVED SIX CYCLES
     Route: 065
     Dates: start: 201609, end: 201701

REACTIONS (3)
  - Off label use [Unknown]
  - Rash [Recovered/Resolved]
  - Dermatitis [Recovered/Resolved]
